FAERS Safety Report 13517112 (Version 1)
Quarter: 2017Q2

REPORT INFORMATION
  Report Type: Spontaneous
  Country: US (occurrence: US)
  Receive Date: 20170505
  Receipt Date: 20170505
  Transmission Date: 20170830
  Serious: Yes (Hospitalization)
  Sender: FDA-Public Use
  Company Number: None

PATIENT
  Age: 47 Year
  Sex: Female
  Weight: 45.8 kg

DRUGS (5)
  1. MOTRIN [Suspect]
     Active Substance: IBUPROFEN
     Indication: PAIN IN EXTREMITY
     Dosage: DATES OF USE - RECENT
     Route: 048
  2. RANITIDINE. [Concomitant]
     Active Substance: RANITIDINE
  3. NEURONTIN [Concomitant]
     Active Substance: GABAPENTIN
  4. POTASSIUM GLUCONATE [Concomitant]
     Active Substance: POTASSIUM GLUCONATE
  5. APAP [Concomitant]
     Active Substance: ACETAMINOPHEN

REACTIONS (2)
  - Gastric ulcer [None]
  - Haematemesis [None]

NARRATIVE: CASE EVENT DATE: 20170104
